FAERS Safety Report 9031409 (Version 2)
Quarter: 2013Q1

REPORT INFORMATION
  Report Type: Report from Study
  Country: GB (occurrence: GB)
  Receive Date: 20130124
  Receipt Date: 20130220
  Transmission Date: 20140127
  Serious: Yes (Hospitalization)
  Sender: FDA-Public Use
  Company Number: GB-ABBOTT-13P-167-1037664-00

PATIENT
  Age: 82 Year
  Sex: Female

DRUGS (17)
  1. HUMIRA [Suspect]
     Indication: RHEUMATOID ARTHRITIS
     Route: 058
     Dates: start: 20120420, end: 20121126
  2. HUMIRA [Suspect]
     Route: 058
     Dates: start: 20130114
  3. FOLIC ACID [Concomitant]
     Indication: RHEUMATOID ARTHRITIS
     Dates: start: 20090824
  4. FERROUS SULPHATE [Concomitant]
     Indication: ANAEMIA
     Dates: start: 20090917
  5. METHOTREXATE [Concomitant]
     Indication: RHEUMATOID ARTHRITIS
     Dates: start: 20090917
  6. METFORMIN [Concomitant]
     Indication: DIABETES MELLITUS
     Dates: start: 20091009
  7. ASPIRIN [Concomitant]
     Indication: PRODUCT USED FOR UNKNOWN INDICATION
     Dates: start: 20091009
  8. DOXAZOSIN [Concomitant]
     Indication: HYPERTENSION
     Dates: start: 20091009
  9. AMITRIPTYLINE [Concomitant]
     Indication: RHEUMATOID ARTHRITIS
     Dates: start: 20091009
  10. TILDIEM [Concomitant]
     Indication: HYPERTENSION
     Dates: start: 20091009
  11. LANSOPRAZOLE [Concomitant]
     Indication: GASTROINTESTINAL DISORDER
     Dates: start: 20090917
  12. SIMVASTATIN [Concomitant]
     Indication: PROPHYLAXIS
     Dates: start: 20090917
  13. TRAMADOL [Concomitant]
     Indication: RHEUMATOID ARTHRITIS
     Dates: start: 20091009
  14. INSULIN MIXTARD [Concomitant]
     Indication: DIABETES MELLITUS
     Dates: start: 20091009
  15. LEVOTHYROXINE [Concomitant]
     Indication: HYPOTHYROIDISM
     Dates: start: 20091009
  16. RIFINAH [Concomitant]
     Indication: TUBERCULIN TEST POSITIVE
     Dates: start: 20100923, end: 201101
  17. PYRIDOXINE [Concomitant]
     Indication: TUBERCULIN TEST POSITIVE
     Dates: start: 20100923, end: 201101

REACTIONS (1)
  - Uterine prolapse [Recovered/Resolved]
